FAERS Safety Report 17233085 (Version 1)
Quarter: 2020Q1

REPORT INFORMATION
  Report Type: Spontaneous
  Country: FR (occurrence: FR)
  Receive Date: 20200104
  Receipt Date: 20200104
  Transmission Date: 20200409
  Serious: Yes (Hospitalization)
  Sender: FDA-Public Use
  Company Number: FR-TEVA-2019-FR-1160733

PATIENT
  Age: 54 Year
  Sex: Male

DRUGS (10)
  1. TIENAM 500 MG/500 MG, POUDRE POUR PERFUSION [Suspect]
     Active Substance: CILASTATIN SODIUM\IMIPENEM
     Indication: BACTERIAL INFECTION
     Dosage: 4 INFUSIONS/DAY, 4 DOSAGE FORMS
     Route: 042
     Dates: start: 20191105, end: 20191112
  2. XANAX [Concomitant]
     Active Substance: ALPRAZOLAM
     Indication: ANXIETY
     Dosage: 1 MG PER DAY
     Route: 048
  3. VANCOMYCINE [Suspect]
     Active Substance: VANCOMYCIN
     Indication: BACTERIAL INFECTION
     Dosage: 1500 MG PER CYCLICAL
     Route: 042
     Dates: start: 20191105, end: 20191111
  4. ZARZIO [Concomitant]
     Active Substance: FILGRASTIM
     Indication: NEUTROPENIA
     Dosage: 1 SYRINGE/DAY, 30 MU PER DAY
     Route: 042
     Dates: start: 20191028, end: 20191102
  5. EFFEXOR [Suspect]
     Active Substance: VENLAFAXINE HYDROCHLORIDE
     Indication: DEPRESSION
     Dosage: 75 MG PER DAY
     Route: 048
     Dates: start: 20191106, end: 20191113
  6. KARDEGIC [Concomitant]
     Active Substance: ASPIRIN DL-LYSINE
     Indication: ISCHAEMIC HEART DISEASE PROPHYLAXIS
     Dosage: 1-0-0, 75 MG PER DAY
     Route: 048
  7. EPORATIO [Concomitant]
     Active Substance: ERYTHROPOIETIN
     Indication: ANAEMIA
     Dosage: 1 INJECTION/DAY
     Route: 058
     Dates: start: 20191028, end: 20191102
  8. VALACICLOVIR [Concomitant]
     Active Substance: VALACYCLOVIR HYDROCHLORIDE
     Indication: ANTIVIRAL PROPHYLAXIS
     Dosage: 1-0-1, 1000 MG PER DAY
     Route: 048
     Dates: end: 20191105
  9. LOVENOX [Concomitant]
     Active Substance: ENOXAPARIN SODIUM
     Indication: CARDIOVASCULAR EVENT PROPHYLAXIS
     Dosage: 4000 IU PER DAY
     Route: 058
     Dates: end: 20191106
  10. LEVETIRACETAM MYLAN [Concomitant]
     Active Substance: LEVETIRACETAM
     Indication: EPILEPSY
     Dosage: 2-0-2, 2000 MG PER DAY
     Route: 048
     Dates: start: 201802

REACTIONS (1)
  - Febrile bone marrow aplasia [Recovered/Resolved]

NARRATIVE: CASE EVENT DATE: 20191113
